FAERS Safety Report 19498901 (Version 3)
Quarter: 2021Q3

REPORT INFORMATION
  Report Type: Report from Study
  Country: NL (occurrence: NL)
  Receive Date: 20210706
  Receipt Date: 20210915
  Transmission Date: 20211014
  Serious: Yes (Hospitalization, Other)
  Sender: FDA-Public Use
  Company Number: NL-AMGEN-NLDNI2021101871

PATIENT
  Age: 75 Year
  Sex: Male

DRUGS (2)
  1. AMG 510 [Suspect]
     Active Substance: AMG-510
     Indication: K-RAS GENE MUTATION
  2. AMG 510 [Suspect]
     Active Substance: AMG-510
     Indication: NON-SMALL CELL LUNG CANCER STAGE IV
     Dosage: 960 MILLIGRAM, QD
     Route: 048
     Dates: start: 20210503, end: 20210615

REACTIONS (2)
  - Acute myocardial infarction [Recovered/Resolved]
  - Non-small cell lung cancer [Not Recovered/Not Resolved]

NARRATIVE: CASE EVENT DATE: 20210606
